FAERS Safety Report 23860926 (Version 2)
Quarter: 2024Q2

REPORT INFORMATION
  Report Type: Spontaneous
  Country: FR (occurrence: FR)
  Receive Date: 20240516
  Receipt Date: 20240528
  Transmission Date: 20240716
  Serious: Yes (Other)
  Sender: FDA-Public Use
  Company Number: FR-TEVA-VS-3191442

PATIENT

DRUGS (1)
  1. OXALIPLATIN [Suspect]
     Active Substance: OXALIPLATIN
     Indication: Peritoneal disorder
     Dosage: PRESSURIZED INTRAPERITONEAL AEROSOL CHEMOTHERAPY
     Route: 033

REACTIONS (2)
  - Peritonitis [Unknown]
  - Off label use [Unknown]
